FAERS Safety Report 6995899-9 (Version None)
Quarter: 2010Q3

REPORT INFORMATION
  Report Type: 
  Country: None (occurrence: None)
  Receive Date: 20100918
  Receipt Date: 20081120
  Transmission Date: 20110219
  Serious: No
  Sender: FDA-Public Use
  Company Number: US-WYE-H06931508

PATIENT
  Age: 60 Year
  Sex: Female

DRUGS (5)
  1. EFFEXOR XR [Suspect]
     Indication: DEPRESSION
     Route: 048
     Dates: start: 20071101, end: 20081101
  2. EXCEDRIN (MIGRAINE) [Concomitant]
  3. CYTOMEL [Concomitant]
  4. PRISTIQ [Suspect]
     Indication: DEPRESSION
     Route: 048
     Dates: start: 20081102
  5. SYNTHROID [Concomitant]

REACTIONS (11)
  - CONFUSIONAL STATE [None]
  - CRYING [None]
  - DEPRESSED MOOD [None]
  - DRUG WITHDRAWAL SYNDROME [None]
  - EYE MOVEMENT DISORDER [None]
  - FEELING OF DESPAIR [None]
  - HEADACHE [None]
  - MALAISE [None]
  - PARAESTHESIA [None]
  - VISION BLURRED [None]
  - VISUAL IMPAIRMENT [None]
